FAERS Safety Report 4604495-X (Version None)
Quarter: 2005Q1

REPORT INFORMATION
  Report Type: 
  Country: None (occurrence: None)
  Receive Date: 20050310
  Receipt Date: 20040423
  Transmission Date: 20050727
  Serious: Yes (Congenital Anomaly)
  Sender: FDA-Public Use
  Company Number: DE-MERCK-0404DEU00164

PATIENT
  Age: 0 Day
  Sex: Female
  Weight: 3 kg

DRUGS (2)
  1. MAXALT [Suspect]
     Indication: MIGRAINE
     Dates: start: 20040323, end: 20040423
  2. DIPYRONE [Concomitant]
     Dates: start: 20040323, end: 20040423

REACTIONS (4)
  - DRUG EXPOSURE DURING PREGNANCY [None]
  - HAEMANGIOMA [None]
  - HAEMANGIOMA CONGENITAL [None]
  - PREGNANCY [None]
